FAERS Safety Report 22274021 (Version 2)
Quarter: 2023Q2

REPORT INFORMATION
  Report Type: Report from Study
  Country: KR (occurrence: KR)
  Receive Date: 20230502
  Receipt Date: 20230510
  Transmission Date: 20230722
  Serious: Yes (Hospitalization)
  Sender: FDA-Public Use
  Company Number: KR-PFIZER INC-PV202300072147

PATIENT
  Age: 52 Year
  Sex: Male
  Weight: 79.4 kg

DRUGS (7)
  1. INLYTA [Suspect]
     Active Substance: AXITINIB
     Indication: Mucoepidermoid carcinoma
     Dosage: 5 MG, 2X/DAY
     Route: 048
     Dates: start: 20230406
  2. NAVELBINE [Suspect]
     Active Substance: VINORELBINE TARTRATE
     Indication: Mucoepidermoid carcinoma
     Dosage: 20 MG/KG, ONCE
     Route: 042
     Dates: start: 20230406
  3. CISPLATIN [Suspect]
     Active Substance: CISPLATIN
     Indication: Mucoepidermoid carcinoma
     Dosage: 60 MG/KG, ONCE
     Route: 042
     Dates: start: 20230406
  4. NALOXONE HYDROCHLORIDE\OXYCODONE HYDROCHLORIDE [Concomitant]
     Active Substance: NALOXONE HYDROCHLORIDE\OXYCODONE HYDROCHLORIDE
     Indication: Pain
     Dosage: UNK
     Route: 048
     Dates: start: 20221201
  5. OXYCODONE HYDROCHLORIDE [Concomitant]
     Active Substance: OXYCODONE HYDROCHLORIDE
     Indication: Pain
     Dosage: UNK
     Route: 048
     Dates: start: 20220919
  6. TAZOLACTAM [Concomitant]
     Indication: Pyrexia
     Dosage: 4.5G/V
     Route: 042
     Dates: start: 20230419
  7. GRASIN [Concomitant]
     Indication: Neutrophil count decreased
     Dosage: PREFILLED INJECTION (300UG/SYRINGE)
     Route: 058
     Dates: start: 20230419

REACTIONS (1)
  - Febrile neutropenia [Recovered/Resolved]

NARRATIVE: CASE EVENT DATE: 20230419
